FAERS Safety Report 20374980 (Version 1)
Quarter: 2022Q1

REPORT INFORMATION
  Report Type: Spontaneous
  Country: US (occurrence: None)
  Receive Date: 20220124
  Receipt Date: 20220124
  Transmission Date: 20220423
  Serious: Yes (Hospitalization)
  Sender: FDA-Public Use
  Company Number: None

PATIENT
  Age: 75 Year
  Sex: Female

DRUGS (9)
  1. OXALIPLATIN [Suspect]
     Active Substance: OXALIPLATIN
     Indication: Diffuse large B-cell lymphoma
     Dosage: OTHER FREQUENCY : 2 WEEKS;?
     Route: 042
     Dates: start: 20210819, end: 20210901
  2. ALOXI [Concomitant]
     Active Substance: PALONOSETRON HYDROCHLORIDE
  3. APAP [Concomitant]
     Active Substance: ACETAMINOPHEN
  4. ALLEGRA [Concomitant]
     Active Substance: FEXOFENADINE HYDROCHLORIDE
  5. OLANZAPINE [Concomitant]
     Active Substance: OLANZAPINE
  6. DEXAMETHASONE [Concomitant]
     Active Substance: DEXAMETHASONE
  7. EMEND [Concomitant]
     Active Substance: APREPITANT
  8. RITUXIMAB [Concomitant]
     Active Substance: RITUXIMAB
  9. GEMZAR [Concomitant]
     Active Substance: GEMCITABINE HYDROCHLORIDE

REACTIONS (4)
  - Laryngospasm [None]
  - Infusion related reaction [None]
  - Dysgeusia [None]
  - Dyspnoea [None]

NARRATIVE: CASE EVENT DATE: 20210901
